FAERS Safety Report 14781116 (Version 1)
Quarter: 2018Q2

REPORT INFORMATION
  Report Type: Spontaneous
  Country: US (occurrence: US)
  Receive Date: 20180419
  Receipt Date: 20180419
  Transmission Date: 20180711
  Serious: No
  Sender: FDA-Public Use
  Company Number: US-ELI_LILLY_AND_COMPANY-US201804004274

PATIENT
  Age: 71 Year
  Sex: Male

DRUGS (2)
  1. BASAGLAR [Suspect]
     Active Substance: INSULIN GLARGINE
     Indication: PRODUCT USED FOR UNKNOWN INDICATION
     Dosage: 60 U, DAILY
     Route: 065
     Dates: start: 201801
  2. BASAGLAR [Suspect]
     Active Substance: INSULIN GLARGINE
     Dosage: 60 U, DAILY
     Route: 065

REACTIONS (4)
  - Arthritis [Not Recovered/Not Resolved]
  - Anxiety [Recovering/Resolving]
  - Nervousness [Recovering/Resolving]
  - Anger [Unknown]

NARRATIVE: CASE EVENT DATE: 20180408
